FAERS Safety Report 4614915-2 (Version None)
Quarter: 2005Q1

REPORT INFORMATION
  Report Type: 
  Country: None (occurrence: None)
  Receive Date: 20050322
  Receipt Date: 20030108
  Transmission Date: 20050727
  Serious: Yes (Congenital Anomaly)
  Sender: FDA-Public Use
  Company Number: FR-ROCHE-328939

PATIENT
  Sex: Male
  Weight: 3.8 kg

DRUGS (1)
  1. ROACCUTANE [Suspect]
     Indication: DRUG USE FOR UNKNOWN INDICATION
     Dosage: THE MOTHER RECEIVED ISOTRETINOIN (TWO CAPSULES TOTAL) ON HER FINGERS WHILST ADMINISTERING THE DRUG +
     Dates: start: 20021215

REACTIONS (10)
  - CONGENITAL ANOMALY [None]
  - CONGENITAL FOOT MALFORMATION [None]
  - DERMOID CYST [None]
  - DRUG EXPOSURE DURING PREGNANCY [None]
  - HEMIHYPERTROPHY [None]
  - KIDNEY MALFORMATION [None]
  - LIVE BIRTH [None]
  - POLYDACTYLY [None]
  - ULTRASOUND SCAN ABNORMAL [None]
  - VESICOURETERIC REFLUX [None]
